FAERS Safety Report 9219230 (Version 1)
Quarter: 2013Q2

REPORT INFORMATION
  Report Type: Spontaneous
  Country: US (occurrence: US)
  Receive Date: 20130409
  Receipt Date: 20130409
  Transmission Date: 20140414
  Serious: No
  Sender: FDA-Public Use
  Company Number: US-BAYER-2013-044402

PATIENT
  Sex: 0

DRUGS (2)
  1. ALEVE CAPLET [Suspect]
     Indication: EYE PAIN
     Dosage: 9 DF
  2. IBUPROFEN [Concomitant]
     Indication: EYE PAIN

REACTIONS (2)
  - Drug ineffective [None]
  - Overdose [None]
